FAERS Safety Report 15947112 (Version 2)
Quarter: 2019Q1

REPORT INFORMATION
  Report Type: Spontaneous
  Country: US (occurrence: US)
  Receive Date: 20190211
  Receipt Date: 20190329
  Transmission Date: 20190417
  Serious: No
  Sender: FDA-Public Use
  Company Number: US-ALLERGAN-1905381US

PATIENT
  Sex: Female

DRUGS (12)
  1. DALVANCE [Suspect]
     Active Substance: DALBAVANCIN
     Indication: ABSCESS LIMB
     Dosage: 1500 MG, SINGLE
     Route: 042
     Dates: start: 20190111, end: 20190111
  2. FLONASE [Concomitant]
     Active Substance: FLUTICASONE PROPIONATE
     Indication: HYPERSENSITIVITY
     Dosage: 1 SPRAY, BID
  3. SINGULAIR [Concomitant]
     Active Substance: MONTELUKAST SODIUM
     Indication: HYPERSENSITIVITY
     Dosage: 10 MG, QD
  4. ZOLOFT [Concomitant]
     Active Substance: SERTRALINE HYDROCHLORIDE
     Indication: DEPRESSION
     Dosage: 100 MG, QD
  5. TAMBOCOR [Concomitant]
     Active Substance: FLECAINIDE ACETATE
     Indication: ARRHYTHMIA
     Dosage: 50 MG, BID
  6. ALBUTEROL. [Concomitant]
     Active Substance: ALBUTEROL
     Indication: ASTHMA
     Dosage: 90 ?G, BID
  7. PROBIOTICS NOS [Concomitant]
     Active Substance: PROBIOTICS NOS
     Dosage: 1 DF, QD
  8. VITAMIN D [Concomitant]
     Active Substance: CHOLECALCIFEROL
     Indication: SUPPLEMENTATION THERAPY
     Dosage: 1000 UNITS, QD
  9. CLONAZEPAM. [Concomitant]
     Active Substance: CLONAZEPAM
     Indication: ANXIETY
     Dosage: 0.25 MG, BID
  10. ESTROGEN [Concomitant]
     Active Substance: ESTROGENS
     Indication: OESTROGEN REPLACEMENT THERAPY
     Dosage: 0.3 MG, QD
  11. HYDROCHLOROTHIAZIDE. [Concomitant]
     Active Substance: HYDROCHLOROTHIAZIDE
     Indication: DIURETIC THERAPY
     Dosage: 25 MG, QD
  12. PRIMIDONE. [Concomitant]
     Active Substance: PRIMIDONE
     Indication: SEIZURE
     Dosage: 50 MG, BID

REACTIONS (3)
  - Erythema [Recovered/Resolved]
  - Back pain [Recovered/Resolved]
  - Red man syndrome [Unknown]

NARRATIVE: CASE EVENT DATE: 20190111
